FAERS Safety Report 6905585-9 (Version None)
Quarter: 2010Q3

REPORT INFORMATION
  Report Type: 
  Country: None (occurrence: None)
  Receive Date: 20100804
  Receipt Date: 20100729
  Transmission Date: 20110219
  Serious: Yes (Hospitalization)
  Sender: FDA-Public Use
  Company Number: IT-ALLERGAN-1009861US

PATIENT
  Age: 3 Year
  Sex: Male

DRUGS (4)
  1. EXOCIN [Suspect]
     Indication: RHINITIS
     Dosage: 6 GTT, QD
     Route: 045
     Dates: start: 20100705, end: 20100706
  2. ROCEPHIN [Concomitant]
     Indication: OTITIS MEDIA ACUTE
     Dosage: 750 MG, QD
     Route: 030
     Dates: start: 20100628, end: 20100703
  3. BENTELAN [Concomitant]
     Dosage: UNK
     Dates: start: 20100628, end: 20100630
  4. TOBRADEX [Concomitant]
     Dosage: UNK
     Dates: start: 20100625, end: 20100704

REACTIONS (4)
  - ANGIOEDEMA [None]
  - PYREXIA [None]
  - RASH [None]
  - VASCULITIS [None]
